FAERS Safety Report 25007065 (Version 1)
Quarter: 2025Q1

REPORT INFORMATION
  Report Type: Spontaneous
  Country: US (occurrence: US)
  Receive Date: 20250225
  Receipt Date: 20250225
  Transmission Date: 20250409
  Serious: No
  Sender: JOHNSON AND JOHNSON
  Company Number: US-JNJFOC-20250224701

PATIENT
  Sex: Female

DRUGS (4)
  1. INVEGA SUSTENNA [Suspect]
     Active Substance: PALIPERIDONE PALMITATE
     Indication: Schizophrenia
     Route: 065
  2. INVEGA SUSTENNA [Suspect]
     Active Substance: PALIPERIDONE PALMITATE
  3. INVEGA SUSTENNA [Suspect]
     Active Substance: PALIPERIDONE PALMITATE
     Route: 065
  4. INVEGA SUSTENNA [Suspect]
     Active Substance: PALIPERIDONE PALMITATE

REACTIONS (13)
  - Psychotic disorder [Unknown]
  - Insomnia [Unknown]
  - Circadian rhythm sleep disorder [Unknown]
  - Product dose omission issue [Unknown]
  - Decreased appetite [Unknown]
  - Drug ineffective [Unknown]
  - Product dose omission issue [Unknown]
  - Therapeutic response increased [Unknown]
  - Psychotic disorder [Unknown]
  - Product container issue [Unknown]
  - Inappropriate schedule of product administration [Unknown]
  - Insomnia [Unknown]
  - Physical disability [Unknown]
